FAERS Safety Report 5025796-X (Version None)
Quarter: 2006Q2

REPORT INFORMATION
  Report Type: 
  Country: None (occurrence: None)
  Receive Date: 20060427
  Receipt Date: 20050425
  Transmission Date: 20061013
  Serious: Yes (Other)
  Sender: FDA-Public Use
  Company Number: 2005054604

PATIENT
  Sex: Male
  Weight: 88.905 kg

DRUGS (16)
  1. AZITHROMYCIN [Suspect]
     Indication: PNEUMONIA BACTERIAL
     Dosage: 600 MG
     Dates: start: 20040101, end: 20050401
  2. AZITHROMYCIN [Suspect]
     Indication: TUBERCULOSIS
     Dosage: 600 MG
     Dates: start: 20040101, end: 20050401
  3. ETHAMBUTOL (ETHAMBUTOL) [Suspect]
     Indication: ILL-DEFINED DISORDER
     Dates: end: 20050401
  4. ALL OTHER THERAPEUTIC PRODUCTS (ALL OTHER THERAPEUTIC PRODUCTS) [Concomitant]
  5. FUROSEMIDE [Concomitant]
  6. SALBUTAMOL (SALBUTAMOL) [Concomitant]
  7. SERETIDE MITE (FLUTICASONE PROPIONATE, SALMETEROL XINAFOATE) [Concomitant]
  8. CALAMINE/CAMPHOR/DIPHENHYDRAMINE (CALAMINE, CAMPHOR, DIPHENYHYDRAMINE) [Concomitant]
  9. METOPROLOL TARTRATE [Concomitant]
  10. PANTOPRAZOLE SODIUM [Concomitant]
  11. UNKNOWN [Concomitant]
  12. POTASSIUM (POTASSIUM) [Concomitant]
  13. NITROGLYCERIN [Concomitant]
  14. FLUTICASONE PROPIONATE [Concomitant]
  15. ACETYLSALICYLIC ACID (ACETLYSALICYLIC ACID) [Concomitant]
  16. STEROID ANTIBACTERIALS (STEROID ANTIBACTERIALS) [Concomitant]

REACTIONS (1)
  - DEAFNESS [None]
